FAERS Safety Report 8799321 (Version 3)
Quarter: 2014Q2

REPORT INFORMATION
  Report Type: Report from Study
  Country: KR (occurrence: KR)
  Receive Date: 20120919
  Receipt Date: 20140501
  Transmission Date: 20141212
  Serious: Yes (Hospitalization)
  Sender: FDA-Public Use
  Company Number: KR-MILLENNIUM PHARMACEUTICALS, INC.-2012-06377

PATIENT
  Sex: 0

DRUGS (5)
  1. VELCADE [Suspect]
     Indication: PLASMA CELL MYELOMA
     Dosage: 1.3 MG/M2
     Route: 042
     Dates: start: 20120424, end: 20120720
  2. VELCADE [Suspect]
     Dosage: 1 MG/M2, UNK
     Route: 042
     Dates: start: 20120724, end: 20120928
  3. VELCADE [Suspect]
     Dosage: 1.3 MG/M2, UNK
     Route: 042
     Dates: start: 20121010, end: 20121016
  4. MELPHALAN [Suspect]
     Indication: PLASMA CELL MYELOMA
     Dosage: 9 MG/M2, UNK
     Route: 065
     Dates: start: 20120424, end: 20121013
  5. PREDNISOLONE [Suspect]
     Indication: PLASMA CELL MYELOMA
     Dosage: 60 MG/M2, UNK
     Route: 065
     Dates: start: 20120424, end: 20121013

REACTIONS (3)
  - Vaginal haemorrhage [Recovered/Resolved]
  - Thrombocytopenia [Recovered/Resolved]
  - Upper respiratory tract infection [Recovered/Resolved]
